FAERS Safety Report 19735913 (Version 4)
Quarter: 2025Q2

REPORT INFORMATION
  Report Type: Report from Study
  Country: CA (occurrence: CA)
  Receive Date: 20210823
  Receipt Date: 20250522
  Transmission Date: 20250717
  Serious: Yes (Other)
  Sender: TAKEDA
  Company Number: CA-TAKEDA-2021TUS052023

PATIENT
  Sex: Male

DRUGS (6)
  1. VEDOLIZUMAB [Suspect]
     Active Substance: VEDOLIZUMAB
     Indication: Colitis ulcerative
  2. VEDOLIZUMAB [Suspect]
     Active Substance: VEDOLIZUMAB
     Indication: Colitis ulcerative
     Dosage: UNK UNK, Q2WEEKS
     Dates: start: 20210623
  3. PREDNISONE [Concomitant]
     Active Substance: PREDNISONE
  4. Salofalk [Concomitant]
  5. IMURAN [Concomitant]
     Active Substance: AZATHIOPRINE
  6. ASACOL [Concomitant]
     Active Substance: MESALAMINE

REACTIONS (4)
  - Crohn^s disease [Not Recovered/Not Resolved]
  - Anal fissure haemorrhage [Unknown]
  - Pallor [Unknown]
  - Malaise [Unknown]
